FAERS Safety Report 6071345-7 (Version None)
Quarter: 2009Q1

REPORT INFORMATION
  Report Type: 
  Country: None (occurrence: None)
  Receive Date: 20090205
  Receipt Date: 20090123
  Transmission Date: 20090719
  Serious: Yes (Other)
  Sender: FDA-Public Use
  Company Number: 230032M09USA

PATIENT
  Age: 38 Year
  Sex: Female

DRUGS (5)
  1. REBIF [Suspect]
     Indication: MULTIPLE SCLEROSIS
     Dosage: 44 MCG, 3 IN 1 WEEKS, SUBCUTANEOUS
     Route: 058
     Dates: start: 20080101
  2. LEXAPRO [Concomitant]
  3. COZAAR [Concomitant]
  4. PRAVASTATIN [Concomitant]
  5. PROVIGIL [Concomitant]

REACTIONS (1)
  - DEAFNESS BILATERAL [None]
